FAERS Safety Report 14931261 (Version 1)
Quarter: 2018Q2

REPORT INFORMATION
  Report Type: Spontaneous
  Country: CA (occurrence: CA)
  Receive Date: 20180524
  Receipt Date: 20180524
  Transmission Date: 20180711
  Serious: Yes (Other)
  Sender: FDA-Public Use
  Company Number: CA-ROCHE-2126762

PATIENT
  Age: 52 Year
  Sex: Male

DRUGS (26)
  1. DELAVIRDINE MESYLATE [Suspect]
     Active Substance: DELAVIRDINE MESYLATE
     Indication: HIV INFECTION
     Route: 065
  2. ISENTRESS [Suspect]
     Active Substance: RALTEGRAVIR POTASSIUM
     Indication: HIV INFECTION
     Route: 065
  3. LOPINAVIR/RITONAVIR [Suspect]
     Active Substance: LOPINAVIR\RITONAVIR
     Indication: HIV INFECTION
     Route: 065
  4. SUSTIVA [Suspect]
     Active Substance: EFAVIRENZ
     Indication: HIV INFECTION
     Route: 048
  5. SAQUINAVIR [Suspect]
     Active Substance: SAQUINAVIR
     Indication: HIV INFECTION
     Route: 048
  6. EFAVIRENZ. [Suspect]
     Active Substance: EFAVIRENZ
     Indication: HIV INFECTION
     Dosage: DOSAGE FORM NOT SPECIFIED
     Route: 048
  7. ETRAVIRINE [Suspect]
     Active Substance: ETRAVIRINE
     Indication: HIV INFECTION
     Route: 048
  8. KALETRA [Suspect]
     Active Substance: LOPINAVIR\RITONAVIR
     Indication: HIV INFECTION
     Dosage: DOSAGE FORM NOT SPECIFIED
     Route: 065
  9. ABACAVIR SULFATE. [Suspect]
     Active Substance: ABACAVIR SULFATE
     Indication: HIV INFECTION
     Route: 065
  10. DIDANOSINE. [Suspect]
     Active Substance: DIDANOSINE
     Indication: HIV INFECTION
     Dosage: DOSAGE FORM NOT SPECIFIED
     Route: 065
  11. RITONAVIR. [Suspect]
     Active Substance: RITONAVIR
     Indication: HIV INFECTION
     Route: 065
  12. ZIDOVUDINE. [Suspect]
     Active Substance: ZIDOVUDINE
     Indication: HIV INFECTION
     Route: 048
  13. DARUNAVIR [Suspect]
     Active Substance: DARUNAVIR
     Indication: HIV INFECTION
     Route: 065
  14. LAMIVUDINE. [Suspect]
     Active Substance: LAMIVUDINE
     Indication: HIV INFECTION
     Dosage: DOSAGE FORM NOT SPECIFIED
     Route: 065
  15. ENFUVIRTIDE. [Suspect]
     Active Substance: ENFUVIRTIDE
     Indication: HIV INFECTION
     Route: 058
  16. INDINAVIR SULFATE [Suspect]
     Active Substance: INDINAVIR SULFATE
     Indication: HIV INFECTION
     Route: 048
  17. LOPINAVIR [Suspect]
     Active Substance: LOPINAVIR
     Indication: HIV INFECTION
     Dosage: DOSAGE FORM NOT SPECIFIED
     Route: 065
  18. NEVIRAPINE. [Suspect]
     Active Substance: NEVIRAPINE
     Indication: HIV INFECTION
     Route: 065
  19. NORVIR [Suspect]
     Active Substance: RITONAVIR
     Indication: HIV INFECTION
     Route: 065
  20. RALTEGRAVIR. [Suspect]
     Active Substance: RALTEGRAVIR
     Indication: HIV INFECTION
     Route: 048
  21. ZERIT [Suspect]
     Active Substance: STAVUDINE
     Indication: HIV INFECTION
     Route: 065
  22. INTELENCE [Suspect]
     Active Substance: ETRAVIRINE
     Indication: HIV INFECTION
     Route: 048
  23. VIREAD [Suspect]
     Active Substance: TENOFOVIR DISOPROXIL FUMARATE
     Indication: HIV INFECTION
     Route: 048
  24. NELFINAVIR MESILATE [Suspect]
     Active Substance: NELFINAVIR MESYLATE
     Indication: HIV INFECTION
     Route: 065
  25. TENOFOVIR DISOPROXIL FUMARATE. [Suspect]
     Active Substance: TENOFOVIR DISOPROXIL FUMARATE
     Indication: HIV INFECTION
     Route: 048
  26. VIDEX EC [Suspect]
     Active Substance: DIDANOSINE
     Indication: HIV INFECTION
     Route: 048

REACTIONS (5)
  - Eyelid ptosis [Recovering/Resolving]
  - Lipodystrophy acquired [Recovering/Resolving]
  - Diplopia [Recovering/Resolving]
  - Mitochondrial toxicity [Recovering/Resolving]
  - Progressive external ophthalmoplegia [Recovering/Resolving]
